FAERS Safety Report 22522211 (Version 6)
Quarter: 2023Q4

REPORT INFORMATION
  Report Type: Report from Study
  Country: US (occurrence: US)
  Receive Date: 20230605
  Receipt Date: 20231009
  Transmission Date: 20240109
  Serious: No
  Sender: FDA-Public Use
  Company Number: US-002147023-NVSC2023US124738

PATIENT
  Age: 80 Year
  Sex: Female

DRUGS (2)
  1. PIQRAY [Suspect]
     Active Substance: ALPELISIB
     Indication: Hormone receptor positive HER2 negative breast cancer
     Dosage: 200 MG, QD
     Route: 048
     Dates: start: 202305
  2. PIQRAY [Suspect]
     Active Substance: ALPELISIB
     Dosage: 250 MG, QD
     Route: 048

REACTIONS (11)
  - Dizziness [Unknown]
  - Oral pain [Unknown]
  - Tumour marker decreased [Unknown]
  - Eating disorder [Unknown]
  - Swelling [Unknown]
  - Dry mouth [Unknown]
  - Ageusia [Unknown]
  - Fatigue [Unknown]
  - Rash [Unknown]
  - Alopecia [Unknown]
  - Stomatitis [Unknown]

NARRATIVE: CASE EVENT DATE: 20230501
